FAERS Safety Report 17077711 (Version 1)
Quarter: 2019Q4

REPORT INFORMATION
  Report Type: Spontaneous
  Country: US (occurrence: US)
  Receive Date: 20191126
  Receipt Date: 20191126
  Transmission Date: 20200122
  Serious: No
  Sender: FDA-Public Use
  Company Number: US-AMGEN-USASP2019192788

PATIENT

DRUGS (2)
  1. CINACALCET HCL [Suspect]
     Active Substance: CINACALCET HYDROCHLORIDE
     Indication: SECONDARY HYPERTHYROIDISM
     Dosage: 30 MILLIGRAM, QD, IN THE EVENING WITH FOOD
     Route: 065
  2. 1-ALPHA-25-DIHYDROXYVITAMIN D3 [Concomitant]
     Dosage: UNK

REACTIONS (2)
  - Treatment noncompliance [Unknown]
  - Off label use [Unknown]
